FAERS Safety Report 14666197 (Version 1)
Quarter: 2018Q1

REPORT INFORMATION
  Report Type: Spontaneous
  Country: US (occurrence: US)
  Receive Date: 20180321
  Receipt Date: 20180321
  Transmission Date: 20180509
  Serious: Yes (Other)
  Sender: FDA-Public Use
  Company Number: US-SAOL THERAPEUTICS-2018SAO00359

PATIENT
  Age: 85 Year
  Sex: Female
  Weight: 53.52 kg

DRUGS (8)
  1. BACLOFEN. [Suspect]
     Active Substance: BACLOFEN
  2. BACLOFEN. [Suspect]
     Active Substance: BACLOFEN
     Indication: MUSCLE SPASTICITY
     Dosage: 135.2 ?G, \DAY
     Route: 037
     Dates: start: 20171117
  3. SIMVASTATIN. [Concomitant]
     Active Substance: SIMVASTATIN
  4. PILOCARPINE EYE DROPS [Concomitant]
     Route: 047
  5. ASPIRIN. [Concomitant]
     Active Substance: ASPIRIN
     Dosage: 1 TABLETS, EVERY 48 HOURS
     Route: 048
  6. CALCIUM 500 + D [Concomitant]
     Active Substance: CALCIUM\VITAMIN D
  7. LATANOPROST EYE DROPS [Concomitant]
     Active Substance: LATANOPROST
     Route: 047
  8. BACLOFEN. [Suspect]
     Active Substance: BACLOFEN
     Indication: PAIN
     Dosage: 200 ?G, \DAY
     Route: 037

REACTIONS (10)
  - Joint stiffness [Unknown]
  - Hypertonic bladder [Unknown]
  - Therapy non-responder [Unknown]
  - Musculoskeletal pain [Unknown]
  - Upper motor neurone lesion [Unknown]
  - Oedema peripheral [None]
  - Abnormal behaviour [Unknown]
  - Migraine without aura [Unknown]
  - Pollakiuria [Unknown]
  - Muscular weakness [Unknown]

NARRATIVE: CASE EVENT DATE: 2017
